FAERS Safety Report 16962136 (Version 1)
Quarter: 2019Q4

REPORT INFORMATION
  Report Type: Spontaneous
  Country: US (occurrence: US)
  Receive Date: 20191024
  Receipt Date: 20191024
  Transmission Date: 20200122
  Serious: No
  Sender: FDA-Public Use
  Company Number: None

PATIENT
  Age: 24 Year
  Sex: Female

DRUGS (1)
  1. NORETHINDRONE 0.35 MG [Suspect]
     Active Substance: NORETHINDRONE
     Indication: DYSMENORRHOEA
     Dosage: ?          QUANTITY:1 TABLET(S);?
     Route: 048
     Dates: start: 20190707

REACTIONS (3)
  - Weight increased [None]
  - Nervousness [None]
  - Emotional disorder [None]

NARRATIVE: CASE EVENT DATE: 20191001
